FAERS Safety Report 11170734 (Version 3)
Quarter: 2018Q1

REPORT INFORMATION
  Report Type: Report from Study
  Country: IT (occurrence: IT)
  Receive Date: 20150608
  Receipt Date: 20180302
  Transmission Date: 20180508
  Serious: Yes (Hospitalization, Other)
  Sender: FDA-Public Use
  Company Number: IT-PFIZER INC-2015185549

PATIENT
  Age: 78 Year
  Sex: Male
  Weight: 65 kg

DRUGS (12)
  1. LEDERFOLIN [Suspect]
     Active Substance: LEUCOVORIN CALCIUM
     Indication: COLORECTAL CANCER METASTATIC
     Dosage: 330 MG, UNK
     Route: 041
     Dates: start: 20150305, end: 20150305
  2. ZALTRAP [Suspect]
     Active Substance: ZIV-AFLIBERCEPT
     Indication: COLORECTAL CANCER METASTATIC
     Dosage: 260 MG, UNK
     Route: 041
     Dates: start: 20150305, end: 20150305
  3. ZALTRAP [Suspect]
     Active Substance: ZIV-AFLIBERCEPT
     Dosage: 260 MG, CYCLIC
     Route: 042
     Dates: start: 20150504, end: 20150504
  4. ARVENUM [Concomitant]
     Active Substance: DIOSMIN
     Dosage: UNK
  5. FLUOROURACIL. [Suspect]
     Active Substance: FLUOROURACIL
     Indication: COLORECTAL CANCER METASTATIC
     Dosage: 4000 MG, UNK
     Route: 041
     Dates: start: 20150305, end: 20150305
  6. FLUOROURACIL. [Suspect]
     Active Substance: FLUOROURACIL
     Dosage: 670 MG, UNK
     Route: 040
     Dates: start: 20150305, end: 20150305
  7. IRINOTECAN HCL [Suspect]
     Active Substance: IRINOTECAN HYDROCHLORIDE
     Dosage: 300 MG, CYCLIC
     Route: 042
     Dates: start: 20150504, end: 20150504
  8. LEDERFOLIN [Suspect]
     Active Substance: LEUCOVORIN CALCIUM
     Dosage: 330 MG, UNK
     Route: 042
     Dates: start: 20150504, end: 20150504
  9. IRINOTECAN HCL [Suspect]
     Active Substance: IRINOTECAN HYDROCHLORIDE
     Indication: COLORECTAL CANCER METASTATIC
     Dosage: 300 MG, UNK
     Route: 041
     Dates: start: 20150305, end: 20150305
  10. FLUOROURACIL. [Suspect]
     Active Substance: FLUOROURACIL
     Dosage: 670 MG, UNK
     Route: 040
     Dates: start: 20150504, end: 20150504
  11. ULTRAPROCT /00225401/ [Concomitant]
     Dosage: UNK
  12. FLUOROURACIL. [Suspect]
     Active Substance: FLUOROURACIL
     Dosage: 4670 MG, CYCLIC
     Route: 042
     Dates: start: 20150504, end: 20150506

REACTIONS (3)
  - Haemorrhoidal haemorrhage [Recovered/Resolved]
  - Aortic thrombosis [Recovered/Resolved]
  - Neutropenia [Recovered/Resolved]

NARRATIVE: CASE EVENT DATE: 20150504
